FAERS Safety Report 17115755 (Version 1)
Quarter: 2019Q4

REPORT INFORMATION
  Report Type: Spontaneous
  Country: MY (occurrence: MY)
  Receive Date: 20191205
  Receipt Date: 20191205
  Transmission Date: 20200122
  Serious: Yes (Other)
  Sender: FDA-Public Use
  Company Number: NVSC2019MY058237

PATIENT
  Age: 22 Year
  Sex: Female

DRUGS (1)
  1. TEGRETOL [Suspect]
     Active Substance: CARBAMAZEPINE
     Indication: EPILEPSY
     Dosage: 200 MG, Q12H
     Route: 048

REACTIONS (3)
  - Mouth ulceration [Recovering/Resolving]
  - Erythema multiforme [Recovering/Resolving]
  - Lip swelling [Recovering/Resolving]
